FAERS Safety Report 24892348 (Version 2)
Quarter: 2025Q2

REPORT INFORMATION
  Report Type: Spontaneous
  Country: CN (occurrence: CN)
  Receive Date: 20250128
  Receipt Date: 20250608
  Transmission Date: 20250717
  Serious: Yes (Hospitalization)
  Sender: COHERUS
  Company Number: CN-SHANGHAI JUNSHI BIOSCIENCES CO., LTD.-CN2025012818

PATIENT

DRUGS (6)
  1. TORIPALIMAB [Suspect]
     Active Substance: TORIPALIMAB
     Indication: Rectal cancer stage III
  2. TORIPALIMAB [Suspect]
     Active Substance: TORIPALIMAB
     Indication: Metastases to lymph nodes
     Dosage: 240 MG, Q3W
     Route: 041
     Dates: start: 20240919, end: 20240919
  3. CAPECITABINE [Suspect]
     Active Substance: CAPECITABINE
     Indication: Rectal cancer stage III
  4. CAPECITABINE [Suspect]
     Active Substance: CAPECITABINE
     Indication: Metastases to lymph nodes
     Dosage: 1.5G+2 G (D1-D14), 3 WEEKS AS A CYCLE
     Route: 048
     Dates: start: 20240919, end: 20240919
  5. OXALIPLATIN [Suspect]
     Active Substance: OXALIPLATIN
     Indication: Rectal cancer stage III
  6. OXALIPLATIN [Suspect]
     Active Substance: OXALIPLATIN
     Indication: Metastases to lymph nodes
     Dosage: 230 MG (D1) VIA INTRAVENOUS DRIP
     Route: 041
     Dates: start: 20240919, end: 20240919

REACTIONS (2)
  - Abdominal pain [Recovered/Resolved]
  - Nausea [Recovered/Resolved]

NARRATIVE: CASE EVENT DATE: 20240919
